FAERS Safety Report 8877108 (Version 2)
Quarter: 2012Q4

REPORT INFORMATION
  Report Type: 
  Country: US (occurrence: US)
  Receive Date: 20121029
  Receipt Date: 20121122
  Transmission Date: 20130627
  Serious: No
  Sender: FDA-Public Use
  Company Number: US-PFIZER INC-2012264388

PATIENT
  Sex: Female

DRUGS (2)
  1. LO/OVRAL-28 [Suspect]
     Indication: DYSMENORRHEA
     Dosage: UNK
     Dates: start: 1987, end: 201201
  2. MICROGESTIN [Suspect]
     Dosage: UNK
     Dates: start: 201201

REACTIONS (3)
  - Metrorrhagia [Unknown]
  - Condition aggravated [Unknown]
  - Drug administration error [Unknown]
